FAERS Safety Report 11318099 (Version 2)
Quarter: 2015Q4

REPORT INFORMATION
  Report Type: Spontaneous
  Country: BR (occurrence: BR)
  Receive Date: 20150728
  Receipt Date: 20151118
  Transmission Date: 20160304
  Serious: Yes (Hospitalization, Other)
  Sender: FDA-Public Use
  Company Number: BR-PFIZER INC-2015246312

PATIENT
  Age: 69 Year
  Sex: Female
  Weight: 70 kg

DRUGS (11)
  1. LIPITOR [Suspect]
     Active Substance: ATORVASTATIN CALCIUM
     Indication: BLOOD TRIGLYCERIDES INCREASED
  2. CITALOR [Suspect]
     Active Substance: ATORVASTATIN
     Indication: BLOOD CHOLESTEROL INCREASED
     Dosage: 1 TABLET, DAILY
     Route: 048
     Dates: start: 2014
  3. PRESS PLUS [Concomitant]
     Indication: HYPERTENSION
     Dosage: 1 TABLET DAILY
     Dates: start: 2010
  4. PANTOPRAZOLE [Concomitant]
     Active Substance: PANTOPRAZOLE SODIUM
     Indication: GASTRIC DISORDER
     Dosage: 1 TABLET DAILY
     Dates: start: 2010
  5. PURAN [Concomitant]
     Active Substance: LEVOTHYROXINE SODIUM
     Indication: THYROID DISORDER
     Dosage: 1 TABLET DAILY
     Dates: start: 2009
  6. METFORMIN [Concomitant]
     Active Substance: METFORMIN HYDROCHLORIDE
     Indication: BLOOD GLUCOSE
     Dosage: 1 TABLET DAILY
     Dates: start: 2013
  7. VITERSOL D [Concomitant]
     Active Substance: CHOLECALCIFEROL
     Indication: VITAMIN SUPPLEMENTATION
     Dosage: 15 GTT, DAILY
  8. DEPURA [Concomitant]
     Active Substance: CHOLECALCIFEROL
     Indication: VITAMIN SUPPLEMENTATION
     Dosage: 5 DROPS DAILY
     Dates: start: 2013
  9. LIPITOR [Suspect]
     Active Substance: ATORVASTATIN CALCIUM
     Indication: BLOOD CHOLESTEROL INCREASED
     Dosage: 20 MG, UNK
     Route: 048
  10. HIGROTON [Concomitant]
     Active Substance: CHLORTHALIDONE
     Indication: HYPERTENSION
     Dosage: A HALF TABLET DAILY
     Dates: start: 2013
  11. FRONTAL [Suspect]
     Active Substance: ALPRAZOLAM
     Dosage: UNK
     Route: 048
     Dates: start: 2015

REACTIONS (6)
  - Cataract [Recovered/Resolved]
  - Infarction [Unknown]
  - Drug ineffective [Unknown]
  - Blood pressure increased [Unknown]
  - Urinary tract infection [Unknown]
  - Coronary artery disease [Unknown]

NARRATIVE: CASE EVENT DATE: 2015
